FAERS Safety Report 7484034-9 (Version None)
Quarter: 2011Q2

REPORT INFORMATION
  Report Type: 
  Country: None (occurrence: None)
  Receive Date: 20110517
  Receipt Date: 20110511
  Transmission Date: 20111010
  Serious: Yes (Hospitalization)
  Sender: FDA-Public Use
  Company Number: US-B.I. PHARMACEUTICALS,INC./RIDGEFIELD-2011-BP-11725BP

PATIENT
  Sex: Female

DRUGS (5)
  1. PRADAXA [Suspect]
     Indication: ATRIAL FIBRILLATION
     Dosage: 300 MG
     Route: 048
     Dates: start: 20110110, end: 20110314
  2. PRADAXA [Suspect]
     Indication: ANTICOAGULANT THERAPY
  3. TOPROL-XL [Concomitant]
  4. PRADAXA [Suspect]
     Indication: CEREBROVASCULAR ACCIDENT PROPHYLAXIS
  5. COZAAR [Concomitant]

REACTIONS (3)
  - HEADACHE [None]
  - GASTROINTESTINAL HAEMORRHAGE [None]
  - DIZZINESS [None]
